FAERS Safety Report 6752751-1 (Version None)
Quarter: 2010Q2

REPORT INFORMATION
  Report Type: 
  Country: None (occurrence: None)
  Receive Date: 20100528
  Receipt Date: 20100521
  Transmission Date: 20101027
  Serious: Yes (Hospitalization, Disabling)
  Sender: FDA-Public Use
  Company Number: 2006-01701

PATIENT
  Age: 51 Year
  Sex: Female

DRUGS (7)
  1. VELCADE [Suspect]
     Indication: MULTIPLE MYELOMA
     Dosage: 2.20 MG
     Dates: start: 20060512, end: 20060708
  2. ADRIAMYCIN PFS [Suspect]
     Indication: MULTIPLE MYELOMA
     Dosage: 60 MG
     Dates: start: 20060512, end: 20060708
  3. DEXAMETHASONE TAB [Suspect]
     Indication: MULTIPLE MYELOMA
     Dosage: 420 MG
     Dates: start: 20060512, end: 20060606
  4. SULFAMETHOXAZOLE AND TRIMETHOPRIM [Concomitant]
  5. PANTOPRAZOLE SODIUM [Concomitant]
  6. MOVICOLON (SODIUM BICARBONATE, POTASSIUM CHLORIDE, MACROGOL, SODIUM CH [Concomitant]
  7. MAGNESIUM OXIDE (MAGNESIUM OXIDE) [Concomitant]

REACTIONS (2)
  - CONSTIPATION [None]
  - POLYNEUROPATHY [None]
